FAERS Safety Report 6723465-9 (Version None)
Quarter: 2010Q2

REPORT INFORMATION
  Report Type: 
  Country: None (occurrence: None)
  Receive Date: 20100513
  Receipt Date: 20100504
  Transmission Date: 20101027
  Serious: Yes (Hospitalization, Other)
  Sender: FDA-Public Use
  Company Number: US-BAYER-201021768NA

PATIENT
  Age: 21 Year
  Sex: Female

DRUGS (1)
  1. MIRENA [Suspect]
     Indication: INTRA-UTERINE CONTRACEPTIVE DEVICE
     Dosage: FREQUENCY: CONTINUOUS
     Route: 015
     Dates: start: 20080101, end: 20100422

REACTIONS (3)
  - ABDOMINAL PAIN [None]
  - ECTOPIC PREGNANCY [None]
  - VAGINAL HAEMORRHAGE [None]
